FAERS Safety Report 23387511 (Version 1)
Quarter: 2024Q1

REPORT INFORMATION
  Report Type: Spontaneous
  Country: JP (occurrence: JP)
  Receive Date: 20240110
  Receipt Date: 20240110
  Transmission Date: 20240409
  Serious: Yes (Death, Hospitalization, Other)
  Sender: FDA-Public Use
  Company Number: JP-TAIHO-2024-000085

PATIENT
  Age: 74 Year
  Sex: Male
  Weight: 45.7 kg

DRUGS (22)
  1. ABRAXANE [Suspect]
     Active Substance: PACLITAXEL
     Indication: Small cell lung cancer
     Dosage: DETAILS NOT REPORTED?DAILY DOSE: 158 MILLIGRAM(S)
     Route: 041
     Dates: start: 20230330, end: 20230622
  2. CARBOPLATIN [Suspect]
     Active Substance: CARBOPLATIN
     Indication: Small cell lung cancer
     Dosage: DETAILS NOT REPORTED?DAILY DOSE: 350 MILLIGRAM(S)
     Route: 041
     Dates: start: 20230330, end: 20230622
  3. PIPERACILLIN SODIUM\TAZOBACTAM SODIUM [Suspect]
     Active Substance: PIPERACILLIN SODIUM\TAZOBACTAM SODIUM
     Indication: Infection
     Route: 042
     Dates: start: 20230706, end: 20230713
  4. VANCOMYCIN [Suspect]
     Active Substance: VANCOMYCIN
     Indication: Infection
     Route: 041
     Dates: start: 20230708, end: 20230721
  5. LANSOPRAZOLE [Suspect]
     Active Substance: LANSOPRAZOLE
     Indication: Prophylaxis
     Route: 048
     Dates: start: 20230709, end: 20230711
  6. FAMOTIDINE [Suspect]
     Active Substance: FAMOTIDINE
     Indication: Prophylaxis
     Route: 048
     Dates: start: 20230712, end: 20230720
  7. NEXIUM [Suspect]
     Active Substance: ESOMEPRAZOLE MAGNESIUM
     Indication: Prophylaxis
     Route: 048
     Dates: start: 20230714, end: 20230716
  8. GANCICLOVIR [Suspect]
     Active Substance: GANCICLOVIR
     Indication: Pneumonia
     Route: 041
     Dates: start: 20230714, end: 20230716
  9. CARBOCYSTEINE [Concomitant]
     Active Substance: CARBOCYSTEINE
     Indication: Product used for unknown indication
     Dosage: NI
     Route: 048
  10. SODIUM PHOSPHATE, DIBASIC\SODIUM PHOSPHATE, MONOBASIC [Concomitant]
     Active Substance: SODIUM PHOSPHATE, DIBASIC\SODIUM PHOSPHATE, MONOBASIC
     Indication: Product used for unknown indication
     Dosage: NI
     Route: 048
  11. SILODOSIN OD [Concomitant]
     Indication: Product used for unknown indication
     Dosage: NI
     Route: 048
  12. AMBROXOL HYDROCHLORIDE [Concomitant]
     Active Substance: AMBROXOL HYDROCHLORIDE
     Indication: Product used for unknown indication
     Dosage: NI
     Route: 048
  13. BISOPROLOL FUMARATE [Concomitant]
     Active Substance: BISOPROLOL FUMARATE
     Indication: Product used for unknown indication
     Dosage: NI
     Route: 048
  14. DUTASTERIDE [Concomitant]
     Active Substance: DUTASTERIDE
     Indication: Product used for unknown indication
     Dosage: NI
     Route: 048
  15. PIRFENIDONE [Concomitant]
     Active Substance: PIRFENIDONE
     Indication: Product used for unknown indication
     Dosage: NI
     Route: 048
  16. PANTOL [PANTHENOL] [Concomitant]
     Indication: Product used for unknown indication
     Dosage: NI
     Route: 042
  17. NEUART [Concomitant]
     Active Substance: ANTITHROMBIN III HUMAN
     Indication: Product used for unknown indication
     Dosage: NI
     Route: 042
  18. THROMBOMODULIN ALFA [Concomitant]
     Active Substance: THROMBOMODULIN ALFA
     Indication: Product used for unknown indication
     Dosage: NI
     Route: 041
  19. VENOGLOBULIN IH [Concomitant]
     Active Substance: HUMAN IMMUNOGLOBULIN G
     Indication: Product used for unknown indication
     Dosage: NI
     Route: 042
  20. METOCLOPRAMIDE HYDROCHLORIDE [Concomitant]
     Active Substance: METOCLOPRAMIDE HYDROCHLORIDE
     Indication: Product used for unknown indication
     Dosage: NI
     Route: 042
  21. NAFAMOSTAT MESYLATE [Concomitant]
     Active Substance: NAFAMOSTAT MESYLATE
     Indication: Product used for unknown indication
     Dosage: NI
     Route: 042
  22. MEROPENEM [Concomitant]
     Active Substance: MEROPENEM
     Indication: Product used for unknown indication
     Dosage: NI
     Route: 041

REACTIONS (5)
  - Platelet count decreased [Fatal]
  - Off label use [Unknown]
  - Labelled drug-disease interaction medication error [Unknown]
  - Neutropenia [Unknown]
  - Urinary tract infection [Unknown]

NARRATIVE: CASE EVENT DATE: 20230330
